FAERS Safety Report 8956235 (Version 1)
Quarter: 2012Q4

REPORT INFORMATION
  Report Type: 
  Country: US (occurrence: US)
  Receive Date: 20121210
  Receipt Date: 20121210
  Transmission Date: 20130627
  Serious: Yes (Other)
  Sender: FDA-Public Use
  Company Number: US-BAYER-2012-128051

PATIENT
  Age: 47 Year
  Sex: Female

DRUGS (4)
  1. YAZ [Suspect]
  2. GIANVI [Suspect]
  3. LORTAB 5/500 [Concomitant]
     Dosage: As needed
  4. ACE INHIBITOR NOS [Concomitant]

REACTIONS (1)
  - Deep vein thrombosis [None]
